FAERS Safety Report 7532502-3 (Version None)
Quarter: 2011Q2

REPORT INFORMATION
  Report Type: 
  Country: None (occurrence: None)
  Receive Date: 20110608
  Receipt Date: 20110526
  Transmission Date: 20111010
  Serious: Yes (Other)
  Sender: FDA-Public Use
  Company Number: PHHY2011AU37401

PATIENT
  Age: 70 Year
  Sex: Male

DRUGS (1)
  1. EXJADE [Suspect]
     Indication: IRON OVERLOAD
     Dosage: 500 MG, UNK
     Route: 048
     Dates: start: 20110108

REACTIONS (6)
  - SLEEP DISORDER [None]
  - PNEUMONIA [None]
  - OEDEMA PERIPHERAL [None]
  - CARDIAC FAILURE [None]
  - BURNING SENSATION [None]
  - DYSPNOEA [None]
